FAERS Safety Report 6257877-7 (Version None)
Quarter: 2009Q3

REPORT INFORMATION
  Report Type: 
  Country: None (occurrence: None)
  Receive Date: 20090707
  Receipt Date: 20070629
  Transmission Date: 20100115
  Serious: Yes (Other)
  Sender: FDA-Public Use
  Company Number: US-ASTRAZENECA-2006UW25424

PATIENT
  Age: 36 Year
  Sex: Female
  Weight: 71.2 kg

DRUGS (8)
  1. SEROQUEL [Suspect]
     Indication: BIPOLAR DISORDER
     Route: 048
     Dates: start: 20030101, end: 20060101
  2. SEROQUEL [Suspect]
     Route: 048
     Dates: start: 20041025
  3. GABITOL [Concomitant]
  4. PROZAC [Concomitant]
     Dates: start: 20010615
  5. PREMARIN [Concomitant]
     Dates: start: 20010615
  6. PAXIL [Concomitant]
     Dates: start: 20030117
  7. WELLBUTRIN [Concomitant]
     Dates: start: 20021101
  8. TEGRETOL [Concomitant]
     Dates: start: 20030117

REACTIONS (4)
  - DIABETES MELLITUS [None]
  - HYPERGLYCAEMIA [None]
  - NEUROPATHY PERIPHERAL [None]
  - TYPE 2 DIABETES MELLITUS [None]
